FAERS Safety Report 8512596-9 (Version None)
Quarter: 2012Q3

REPORT INFORMATION
  Report Type: 
  Country: None (occurrence: None)
  Receive Date: 20120716
  Receipt Date: 20120711
  Transmission Date: 20120928
  Serious: Yes (Life-Threatening)
  Sender: FDA-Public Use
  Company Number: JP-ASTRAZENECA-2012SE43423

PATIENT
  Age: 34 Year
  Sex: Female

DRUGS (2)
  1. DIPRIVAN [Suspect]
     Indication: GENERAL ANAESTHESIA
     Route: 042
  2. ROCURONIUM BROMIDE [Suspect]
     Indication: GENERAL ANAESTHESIA

REACTIONS (1)
  - ANAPHYLACTIC SHOCK [None]
